FAERS Safety Report 18286242 (Version 1)
Quarter: 2020Q3

REPORT INFORMATION
  Report Type: Spontaneous
  Country: US (occurrence: US)
  Receive Date: 20200920
  Receipt Date: 20200920
  Transmission Date: 20201103
  Serious: No
  Sender: FDA-Public Use
  Company Number: US-009507513-2009USA002089

PATIENT
  Age: 52 Year
  Sex: Female
  Weight: 122.45 kg

DRUGS (1)
  1. BRIDION [Suspect]
     Active Substance: SUGAMMADEX
     Indication: SURGERY
     Dosage: 2 MILLILITER, ONCE
     Route: 042

REACTIONS (2)
  - Bronchial hyperreactivity [Recovered/Resolved]
  - Muscle twitching [Recovered/Resolved]
